FAERS Safety Report 9178002 (Version 3)
Quarter: 2014Q1

REPORT INFORMATION
  Report Type: Other
  Country: FR (occurrence: FR)
  Receive Date: 20130321
  Receipt Date: 20140220
  Transmission Date: 20141002
  Serious: Yes (Other)
  Sender: FDA-Public Use
  Company Number: US-BRISTOL-MYERS SQUIBB COMPANY-18707349

PATIENT
  Sex: 0

DRUGS (1)
  1. SUSTIVA [Suspect]
     Route: 064

REACTIONS (1)
  - Cerebral cyst [Unknown]
